FAERS Safety Report 8331385-1 (Version None)
Quarter: 2012Q2

REPORT INFORMATION
  Report Type: 
  Country: None (occurrence: None)
  Receive Date: 20120502
  Receipt Date: 20120416
  Transmission Date: 20120825
  Serious: No
  Sender: FDA-Public Use
  Company Number: US-AMGEN-USASP2012023983

PATIENT
  Age: 41 Year
  Sex: Female

DRUGS (1)
  1. ENBREL [Suspect]
     Indication: AUTOIMMUNE DISORDER
     Dosage: 50 MG, QWK
     Dates: start: 20110213

REACTIONS (7)
  - FACIAL PAIN [None]
  - SINUS HEADACHE [None]
  - SPUTUM DISCOLOURED [None]
  - PYREXIA [None]
  - VULVOVAGINAL DISCOMFORT [None]
  - TOOTHACHE [None]
  - VULVOVAGINAL PRURITUS [None]
